FAERS Safety Report 6429147-5 (Version None)
Quarter: 2009Q4

REPORT INFORMATION
  Report Type: 
  Country: None (occurrence: None)
  Receive Date: 20091030
  Receipt Date: 20091016
  Transmission Date: 20100525
  Serious: Yes (Hospitalization, Other)
  Sender: FDA-Public Use
  Company Number: 2009AC000251

PATIENT
  Age: 78 Year
  Sex: Female

DRUGS (52)
  1. DIGOXIN [Suspect]
     Indication: ARRHYTHMIA
     Dosage: 0.125 MG;QD;PO
     Route: 048
     Dates: start: 20080201, end: 20080909
  2. LEVOTHYROXINE SODIUM [Concomitant]
  3. LOVASTATIN [Concomitant]
  4. AMIODARONE HCL [Concomitant]
  5. PROMETHAZINE [Concomitant]
  6. ZOLPIDEM [Concomitant]
  7. MEXILETINE HYDROCHLORIDE [Concomitant]
  8. ZETIA [Concomitant]
  9. PHOSLO [Concomitant]
  10. ALLOPURINOL [Concomitant]
  11. METOPROLOL [Concomitant]
  12. GENTAMICIN [Concomitant]
  13. AMBIEN [Concomitant]
  14. MECLIZINE [Concomitant]
  15. RENAL SOFT GEL [Concomitant]
  16. NITROGLYCERIN [Concomitant]
  17. RENAGEL [Concomitant]
  18. MIDODRINE HYDROCHLORIDE [Concomitant]
  19. CHERATUSSIN [Concomitant]
  20. MAGOXIDE [Concomitant]
  21. SENSIPAR [Concomitant]
  22. ISOSORBIDE [Concomitant]
  23. TOPROL-XL [Concomitant]
  24. POTASSIUM CHLORIDE [Concomitant]
  25. METOLAZONE [Concomitant]
  26. TORESEMIDE [Concomitant]
  27. PLAVIX [Concomitant]
  28. FLOGARD [Concomitant]
  29. CLOPIDOGREL [Concomitant]
  30. DIOVAN [Concomitant]
  31. HYDRALAZINE HCL [Concomitant]
  32. FLOPLEX [Concomitant]
  33. GALATRO [Concomitant]
  34. ASPIRIN [Concomitant]
  35. COMPAZINE [Concomitant]
  36. ATROPINE [Concomitant]
  37. EPOGEN [Concomitant]
  38. LORAZEPAM [Concomitant]
  39. PRILOSEC [Concomitant]
  40. NITROGLYCERIN [Concomitant]
  41. MULTIVITAMINES [Concomitant]
  42. OXYGEN [Concomitant]
  43. ROXANOL [Concomitant]
  44. TYLENOL (CAPLET) [Concomitant]
  45. SYNTHROID [Concomitant]
  46. STRESS FORMULA TABLETS [Concomitant]
  47. NORVASC [Concomitant]
  48. COREG [Concomitant]
  49. TEMAZEPAM [Concomitant]
  50. COLCHICINES [Concomitant]
  51. ALLOPURINOL [Concomitant]
  52. SPIRIVA [Concomitant]

REACTIONS (14)
  - ANAEMIA [None]
  - DECREASED APPETITE [None]
  - DIZZINESS [None]
  - FATIGUE [None]
  - HYPOTENSION [None]
  - INJURY [None]
  - MALAISE [None]
  - MYOCARDIAL ISCHAEMIA [None]
  - NAUSEA [None]
  - PALPITATIONS [None]
  - PERITONEAL DIALYSIS [None]
  - RENAL FAILURE CHRONIC [None]
  - THERAPEUTIC AGENT TOXICITY [None]
  - VOMITING [None]
